FAERS Safety Report 5654036-3 (Version None)
Quarter: 2008Q1

REPORT INFORMATION
  Report Type: 
  Country: None (occurrence: None)
  Receive Date: 20080131
  Receipt Date: 20071001
  Transmission Date: 20080703
  Serious: No
  Sender: FDA-Public Use
  Company Number: US200710000493

PATIENT
  Age: 62 Year
  Sex: Female

DRUGS (1)
  1. BYETTA [Suspect]
     Dosage: 10 UG ; 10 UG

REACTIONS (1)
  - BLOOD GLUCOSE INCREASED [None]
